FAERS Safety Report 13929910 (Version 2)
Quarter: 2017Q3

REPORT INFORMATION
  Report Type: Report from Study
  Country: CZ (occurrence: CZ)
  Receive Date: 20170901
  Receipt Date: 20170908
  Transmission Date: 20171127
  Serious: Yes (Hospitalization)
  Sender: FDA-Public Use
  Company Number: CZ-PFIZER INC-2017369424

PATIENT
  Age: 73 Year
  Sex: Female
  Weight: 52 kg

DRUGS (5)
  1. TENSIOMIN [Concomitant]
     Active Substance: CAPTOPRIL
     Dosage: 12.5 MG, UNK
     Dates: start: 20170727, end: 20170821
  2. ARUTIMOL [Concomitant]
     Dosage: 4.8 MG, UNK
     Dates: start: 200306
  3. AGEN [Concomitant]
     Dosage: 5 MG, UNK
     Dates: start: 20170727
  4. IBALGIN [Concomitant]
     Active Substance: IBUPROFEN
     Dosage: 400 MG, UNK
     Dates: start: 20170622, end: 20170830
  5. SUNITINIB MALATE. [Suspect]
     Active Substance: SUNITINIB MALATE
     Indication: RENAL CELL CARCINOMA
     Dosage: 50 MG, CYCLIC (QD, FOR 4 WEEKS AND THEN OFF TREATMENT FOR 2 WEEKS)
     Route: 048
     Dates: start: 20170601, end: 20170628

REACTIONS (1)
  - Dyspnoea [Recovering/Resolving]

NARRATIVE: CASE EVENT DATE: 20170820
